FAERS Safety Report 19942087 (Version 1)
Quarter: 2021Q4

REPORT INFORMATION
  Report Type: Spontaneous
  Country: BE (occurrence: BE)
  Receive Date: 20211011
  Receipt Date: 20211011
  Transmission Date: 20220303
  Serious: Yes (Life-Threatening, Hospitalization, Other)
  Sender: FDA-Public Use
  Company Number: BE-LUPIN PHARMACEUTICALS INC.-2021-19182

PATIENT
  Age: 80 Year
  Sex: Female

DRUGS (10)
  1. LEVETIRACETAM [Suspect]
     Active Substance: LEVETIRACETAM
     Indication: Status epilepticus
     Dosage: 1000 MILLIGRAM
     Route: 065
  2. QUININE [Suspect]
     Active Substance: QUININE
     Indication: Muscle spasms
     Dosage: 25 MILLIGRAM,ACCORDING TO THE LABEL, THE MEDICATION CONTAINED 25 MG QUININE SULPHATE, 162.5 MG AMIDO
     Route: 065
  3. QUININE [Suspect]
     Active Substance: QUININE
     Indication: Myalgia
  4. PROPOFOL [Suspect]
     Active Substance: PROPOFOL
     Indication: Status epilepticus
     Dosage: UNK
     Route: 065
  5. ANTIPYRINE [Suspect]
     Active Substance: ANTIPYRINE
     Indication: Muscle spasms
     Dosage: 187.5 MILLIGRAM,ACCORDING TO THE LABEL, THE MEDICATION CONTAINED 25 MG QUININE SULPHATE, 162.5 MG AM
     Route: 065
  6. ANTIPYRINE [Suspect]
     Active Substance: ANTIPYRINE
     Indication: Myalgia
  7. ASPIRIN [Suspect]
     Active Substance: ASPIRIN
     Indication: Muscle spasms
     Dosage: 150 MILLIGRAM,ACCORDING TO THE LABEL, THE MEDICATION CONTAINED 25 MG QUININE SULPHATE, 162.5 MG AMID
     Route: 065
  8. ASPIRIN [Suspect]
     Active Substance: ASPIRIN
     Indication: Myalgia
  9. DALFAMPRIDINE [Suspect]
     Active Substance: DALFAMPRIDINE
     Indication: Product used for unknown indication
     Dosage: UNK,A CONTAINER WITH FAMPRIDINE HAD BEEN USED ACCIDENTALLY INSTEAD OF AMINOPHENAZONE
     Route: 065
  10. AMINOPHENAZONE [Suspect]
     Active Substance: AMINOPHENAZONE
     Indication: Product used for unknown indication
     Dosage: UNK
     Route: 065

REACTIONS (5)
  - Drug ineffective [Unknown]
  - Status epilepticus [Recovered/Resolved]
  - Toxicity to various agents [Recovered/Resolved]
  - Product preparation error [Unknown]
  - Product dispensing error [Unknown]
